FAERS Safety Report 8073317-X (Version None)
Quarter: 2012Q1

REPORT INFORMATION
  Report Type: 
  Country: None (occurrence: None)
  Receive Date: 20120126
  Receipt Date: 20120119
  Transmission Date: 20120608
  Serious: Yes (Other)
  Sender: FDA-Public Use
  Company Number: CA-ABBOTT-11P-028-0884050-00

PATIENT
  Sex: Female
  Weight: 52.664 kg

DRUGS (3)
  1. CELEBREX [Concomitant]
     Indication: RHEUMATOID ARTHRITIS
     Route: 048
     Dates: start: 20111209
  2. HUMIRA [Suspect]
     Indication: RHEUMATOID ARTHRITIS
     Route: 058
     Dates: start: 20080722, end: 20101001
  3. HUMIRA [Suspect]
     Route: 058
     Dates: start: 20111212

REACTIONS (3)
  - HAND FRACTURE [None]
  - LIMB INJURY [None]
  - ROTATOR CUFF SYNDROME [None]
